FAERS Safety Report 11099642 (Version 1)
Quarter: 2015Q2

REPORT INFORMATION
  Report Type: Spontaneous
  Country: AU (occurrence: AU)
  Receive Date: 20150508
  Receipt Date: 20150508
  Transmission Date: 20150821
  Serious: Yes (Disabling)
  Sender: FDA-Public Use
  Company Number: AU-MYLANLABS-2015M1015203

PATIENT

DRUGS (3)
  1. PRAMIPEXOLE [Suspect]
     Active Substance: PRAMIPEXOLE
     Indication: RESTLESS LEGS SYNDROME
     Dosage: STARTED AT THE DOSE OF 0.125MG AND TITRATED TO 0.25MG
     Route: 065
  2. CITALOPRAM [Concomitant]
     Active Substance: CITALOPRAM HYDROBROMIDE
     Indication: MAJOR DEPRESSION
     Dosage: INCREASED UP TO 80 MG/DAY (IN THE MORNING) BY JUNE 2010
     Route: 065
  3. CLOZAPINE. [Suspect]
     Active Substance: CLOZAPINE
     Indication: MAJOR DEPRESSION
     Dosage: TITRATED UP TO 300 MG/DAY (TAKEN AT NIGHT)
     Route: 065
     Dates: start: 201101

REACTIONS (2)
  - Restless legs syndrome [Recovered/Resolved]
  - Nausea [Unknown]
